FAERS Safety Report 4712893-9 (Version None)
Quarter: 2005Q3

REPORT INFORMATION
  Report Type: 
  Country: None (occurrence: None)
  Receive Date: 20050713
  Receipt Date: 20050704
  Transmission Date: 20060218
  Serious: Yes (Other)
  Sender: FDA-Public Use
  Company Number: GB-JNJFOC-20050700375

PATIENT
  Age: 32 Year
  Sex: Female

DRUGS (1)
  1. REMICADE [Suspect]
     Indication: DRUG USE FOR UNKNOWN INDICATION
     Dosage: 2 INFUSIONS
     Route: 042

REACTIONS (2)
  - HYPOAESTHESIA [None]
  - TACHYCARDIA [None]
